FAERS Safety Report 17941027 (Version 3)
Quarter: 2020Q3

REPORT INFORMATION
  Report Type: Report from Study
  Country: US (occurrence: US)
  Receive Date: 20200624
  Receipt Date: 20200924
  Transmission Date: 20201103
  Serious: Yes (Hospitalization, Other)
  Sender: FDA-Public Use
  Company Number: US-AGIOS-2006US02001

PATIENT

DRUGS (3)
  1. TIBSOVO [Suspect]
     Active Substance: IVOSIDENIB
     Dosage: 250MG, 2 TABLETS (500MG) DAILY
     Route: 048
     Dates: start: 20200604
  2. TIBSOVO [Suspect]
     Active Substance: IVOSIDENIB
     Indication: ACUTE MYELOID LEUKAEMIA
     Dosage: 250MG, 2 TABLETS (500MG) DAILY
     Route: 048
     Dates: start: 20200415
  3. VENETOCLAX. [Concomitant]
     Active Substance: VENETOCLAX
     Indication: PRODUCT USED FOR UNKNOWN INDICATION

REACTIONS (9)
  - Peripheral swelling [Not Recovered/Not Resolved]
  - Myalgia [Unknown]
  - Pyrexia [Unknown]
  - Fall [Unknown]
  - Pyrexia [Unknown]
  - Anaemia [Unknown]
  - Thrombocytopenia [Unknown]
  - Hip fracture [Unknown]
  - Dry skin [Unknown]

NARRATIVE: CASE EVENT DATE: 202004
